FAERS Safety Report 8430031-6 (Version None)
Quarter: 2012Q2

REPORT INFORMATION
  Report Type: 
  Country: None (occurrence: None)
  Receive Date: 20120612
  Receipt Date: 20120529
  Transmission Date: 20120825
  Serious: Yes (Congenital Anomaly)
  Sender: FDA-Public Use
  Company Number: VE-ROCHE-1074347

PATIENT
  Sex: Female
  Weight: 60 kg

DRUGS (7)
  1. L-CARNITINE [Concomitant]
  2. DROSPIRENONE AND ETHINYL ESTRADIOL [Concomitant]
     Indication: CONTRACEPTION
  3. ISOTRETINOIN [Suspect]
     Indication: ACNE
     Route: 048
     Dates: start: 20080101, end: 20120419
  4. ISOTRETINOIN [Suspect]
  5. ISOTRETINOIN [Suspect]
  6. METFORMIN HCL [Concomitant]
     Indication: HYPERINSULINISM
  7. GOTU KOLA [Concomitant]

REACTIONS (1)
  - PREGNANCY [None]
